FAERS Safety Report 8220584-5 (Version None)
Quarter: 2012Q1

REPORT INFORMATION
  Report Type: 
  Country: None (occurrence: None)
  Receive Date: 20120320
  Receipt Date: 20120310
  Transmission Date: 20120608
  Serious: Yes (Hospitalization, Other)
  Sender: FDA-Public Use
  Company Number: US-BAYER-2011-046166

PATIENT
  Age: 28 Year
  Sex: Female
  Weight: 50.34 kg

DRUGS (5)
  1. DROSPIRENONE AND ETHINYL ESTRADIOL [Suspect]
     Dosage: UNK
     Dates: start: 20080101
  2. LOVENOX [Concomitant]
     Indication: DEEP VEIN THROMBOSIS
     Dosage: UNK
     Dates: start: 20030601
  3. YASMIN [Suspect]
     Dosage: UNK
     Route: 048
     Dates: start: 20041201, end: 20100101
  4. NEXIUM [Concomitant]
     Dosage: UNK
     Dates: start: 20020101, end: 20050101
  5. YASMIN [Suspect]
     Indication: CONTRACEPTION
     Dosage: UNK
     Route: 048
     Dates: start: 20010501, end: 20031201

REACTIONS (6)
  - DEEP VEIN THROMBOSIS [None]
  - DEPRESSION [None]
  - PAIN IN EXTREMITY [None]
  - EMOTIONAL DISTRESS [None]
  - SPHINCTER OF ODDI DYSFUNCTION [None]
  - ANHEDONIA [None]
